FAERS Safety Report 11197230 (Version 1)
Quarter: 2015Q2

REPORT INFORMATION
  Report Type: Spontaneous
  Country: US (occurrence: US)
  Receive Date: 20150617
  Receipt Date: 20150617
  Transmission Date: 20150821
  Serious: No
  Sender: FDA-Public Use
  Company Number: US-SA-2014SA168062

PATIENT
  Sex: Male
  Weight: 3.24 kg

DRUGS (1)
  1. CEREZYME [Suspect]
     Active Substance: IMIGLUCERASE
     Dosage: DOSE:29 UNIT(S)/KILOGRAM BODYWEIGHT
     Route: 064

REACTIONS (2)
  - Speech disorder developmental [Unknown]
  - Maternal exposure during pregnancy [Unknown]
